FAERS Safety Report 17568641 (Version 2)
Quarter: 2020Q2

REPORT INFORMATION
  Report Type: Spontaneous
  Country: SE (occurrence: SE)
  Receive Date: 20200321
  Receipt Date: 20200407
  Transmission Date: 20200713
  Serious: Yes (Congenital Anomaly, Other)
  Sender: FDA-Public Use
  Company Number: SE-UCBSA-2020010774

PATIENT
  Sex: Male

DRUGS (8)
  1. KEPPRA [Suspect]
     Active Substance: LEVETIRACETAM
     Indication: EPILEPSY
     Dosage: 1500 MG DAILY
     Route: 064
     Dates: end: 20181206
  2. KEPPRA [Suspect]
     Active Substance: LEVETIRACETAM
     Dosage: 2 DAILY (750 MG + 1000 MG)
     Route: 064
     Dates: start: 20181213, end: 20190211
  3. LAMOTRIGINE. [Suspect]
     Active Substance: LAMOTRIGINE
     Dosage: 600 MG DAILY
     Route: 064
     Dates: start: 20190126, end: 20190323
  4. ZONEGRAN [Suspect]
     Active Substance: ZONISAMIDE
     Indication: EPILEPSY
     Dosage: 300 MG DAILY
     Route: 064
  5. LAMOTRIGINE. [Suspect]
     Active Substance: LAMOTRIGINE
     Indication: EPILEPSY
     Dosage: 200 MG DAILLY
     Route: 064
     Dates: end: 20190125
  6. KEPPRA [Suspect]
     Active Substance: LEVETIRACETAM
     Dosage: 2000 MG DAILY
     Route: 064
     Dates: start: 20181207, end: 20181212
  7. KEPPRA [Suspect]
     Active Substance: LEVETIRACETAM
     Dosage: 2000MG DAILY
     Route: 064
     Dates: start: 20190212
  8. LAMOTRIGINE. [Suspect]
     Active Substance: LAMOTRIGINE
     Dosage: 800MG DAILY
     Route: 064
     Dates: start: 20190324

REACTIONS (4)
  - Foetal growth restriction [Unknown]
  - Premature baby [Recovered/Resolved]
  - Congenital inguinal hernia [Recovered/Resolved]
  - Maternal exposure during pregnancy [Unknown]

NARRATIVE: CASE EVENT DATE: 201905
